FAERS Safety Report 24981788 (Version 1)
Quarter: 2025Q1

REPORT INFORMATION
  Report Type: Spontaneous
  Country: US (occurrence: None)
  Receive Date: 20250218
  Receipt Date: 20250218
  Transmission Date: 20250409
  Serious: Yes (Hospitalization)
  Sender: FDA-CTU
  Company Number: None

PATIENT
  Sex: Female
  Weight: 71.21 kg

DRUGS (4)
  1. WINREVAIR [Suspect]
     Active Substance: SOTATERCEPT-CSRK
     Indication: Pulmonary arterial hypertension
     Dosage: FREQUENCY : EVERY THREE WEEKS;?
     Route: 058
     Dates: start: 202501
  2. REMODULIN [Suspect]
     Active Substance: TREPROSTINIL
  3. 2-HYDROXYETHYL METHACRYLATE\DEVICE [Concomitant]
     Active Substance: 2-HYDROXYETHYL METHACRYLATE\DEVICE
  4. ADEMPAS [Concomitant]
     Active Substance: RIOCIGUAT

REACTIONS (3)
  - Influenza [None]
  - Pneumonia [None]
  - Hypersensitivity [None]
